FAERS Safety Report 25194265 (Version 2)
Quarter: 2025Q2

REPORT INFORMATION
  Report Type: Spontaneous
  Country: US (occurrence: US)
  Receive Date: 20250414
  Receipt Date: 20250418
  Transmission Date: 20250716
  Serious: Yes (Death, Hospitalization, Other)
  Sender: ABBVIE
  Company Number: US-ABBVIE-6229142

PATIENT
  Age: 71 Year
  Sex: Male
  Weight: 63.502 kg

DRUGS (2)
  1. HUMIRA [Suspect]
     Active Substance: ADALIMUMAB
     Indication: Arthritis
     Dosage: FORM STRENGTH UNITS: 40 MILLIGRAM
     Route: 058
     Dates: start: 2008, end: 202205
  2. LISINOPRIL [Concomitant]
     Active Substance: LISINOPRIL
     Indication: Blood pressure measurement

REACTIONS (3)
  - Hepatic failure [Fatal]
  - Cholelithiasis [Recovered/Resolved]
  - Atrial fibrillation [Fatal]

NARRATIVE: CASE EVENT DATE: 20220101
